FAERS Safety Report 5378638-7 (Version None)
Quarter: 2007Q3

REPORT INFORMATION
  Report Type: 
  Country: None (occurrence: None)
  Receive Date: 20070702
  Receipt Date: 20070702
  Transmission Date: 20080115
  Serious: Yes (Other)
  Sender: FDA-Public Use
  Company Number: None

PATIENT
  Age: 47 Year
  Sex: Female
  Weight: 90.7194 kg

DRUGS (2)
  1. TOPAMAX [Suspect]
     Indication: BIPOLAR DISORDER
     Dosage: ONE QD PO
     Route: 048
     Dates: start: 20070531, end: 20070622
  2. TOPAMAX [Suspect]
     Indication: WEIGHT INCREASED
     Dosage: ONE QD PO
     Route: 048
     Dates: start: 20070531, end: 20070622

REACTIONS (4)
  - ABNORMAL BEHAVIOUR [None]
  - CONFUSIONAL STATE [None]
  - DISORIENTATION [None]
  - ROAD TRAFFIC ACCIDENT [None]
